FAERS Safety Report 11291528 (Version 2)
Quarter: 2015Q3

REPORT INFORMATION
  Report Type: Spontaneous
  Country: CA (occurrence: CA)
  Receive Date: 20150722
  Receipt Date: 20150731
  Transmission Date: 20151125
  Serious: Yes (Death, Life-Threatening, Other)
  Sender: FDA-Public Use
  Company Number: CA-ROCHE-1611369

PATIENT
  Age: 56 Year
  Sex: Female
  Weight: 86.9 kg

DRUGS (4)
  1. QUETIAPINE [Concomitant]
     Active Substance: QUETIAPINE
     Indication: ANXIETY
     Dosage: QHS - EVERY NIGHT
     Route: 048
     Dates: start: 20150126
  2. TRASTUZUMAB [Suspect]
     Active Substance: TRASTUZUMAB
     Indication: BREAST CANCER METASTATIC
     Route: 042
     Dates: start: 20140718, end: 20150326
  3. LORAZEPAM. [Concomitant]
     Active Substance: LORAZEPAM
     Indication: ANXIETY
     Route: 058
     Dates: start: 20150227
  4. PERJETA [Suspect]
     Active Substance: PERTUZUMAB
     Indication: BREAST CANCER METASTATIC
     Route: 042
     Dates: start: 20140718, end: 20150326

REACTIONS (6)
  - Coronary artery stenosis [Unknown]
  - Cardiac failure [Fatal]
  - Akinesia [Unknown]
  - Cardiac failure [Unknown]
  - Acute myocardial infarction [Fatal]
  - Mitral valve prolapse [Unknown]

NARRATIVE: CASE EVENT DATE: 20150327
